FAERS Safety Report 16744128 (Version 1)
Quarter: 2019Q3

REPORT INFORMATION
  Report Type: Spontaneous
  Country: US (occurrence: US)
  Receive Date: 20190709
  Receipt Date: 20190709
  Transmission Date: 20191005
  Serious: No
  Sender: FDA-Public Use
  Company Number: None

PATIENT
  Age: 91 Year
  Sex: Female
  Weight: 56.7 kg

DRUGS (9)
  1. AMLODIPINE BESYLATE. [Concomitant]
     Active Substance: AMLODIPINE BESYLATE
  2. VITAMIN E [Concomitant]
     Active Substance: .ALPHA.-TOCOPHEROL
  3. CLARITHROMYCIN 500MG TABS [Suspect]
     Active Substance: CLARITHROMYCIN
     Indication: BACTERIAL INFECTION
     Dosage: ?          QUANTITY:1 PILL TWICE A DAY;OTHER FREQUENCY:MORNING AND NIGHT;?
     Route: 048
     Dates: start: 20190605, end: 20190609
  4. CALTRATE WITH VITAMIN D [Concomitant]
     Active Substance: CALCIUM CARBONATE\CHOLECALCIFEROL
  5. MAGNESIUM [Concomitant]
     Active Substance: MAGNESIUM
  6. CLARITHROMYCIN 500MG TABS [Suspect]
     Active Substance: CLARITHROMYCIN
     Indication: PULMONARY CONGESTION
     Dosage: ?          QUANTITY:1 PILL TWICE A DAY;OTHER FREQUENCY:MORNING AND NIGHT;?
     Route: 048
     Dates: start: 20190605, end: 20190609
  7. BENAZEPRIL HCL [Concomitant]
     Active Substance: BENAZEPRIL HYDROCHLORIDE
  8. ASPIRIN. [Concomitant]
     Active Substance: ASPIRIN
  9. SERTRALINE HCL [Concomitant]
     Active Substance: SERTRALINE HYDROCHLORIDE

REACTIONS (7)
  - Taste disorder [None]
  - Body temperature increased [None]
  - Asthenia [None]
  - Fatigue [None]
  - Influenza like illness [None]
  - Cough [None]
  - Dysgeusia [None]

NARRATIVE: CASE EVENT DATE: 20190605
